FAERS Safety Report 6792957-9 (Version None)
Quarter: 2010Q2

REPORT INFORMATION
  Report Type: 
  Country: None (occurrence: None)
  Receive Date: 20100624
  Receipt Date: 20090516
  Transmission Date: 20101027
  Serious: Yes (Other)
  Sender: FDA-Public Use
  Company Number: US-PFIZER INC-2008083110

PATIENT
  Age: 43 Year
  Sex: Female
  Weight: 97.959 kg

DRUGS (4)
  1. GEODON [Suspect]
     Indication: BIPOLAR DISORDER
     Dosage: 40 MG, 2X/DAY
     Route: 048
     Dates: start: 20080901, end: 20081001
  2. LAMICTAL [Concomitant]
     Dosage: 100 MG, 2X/DAY
  3. METFORMIN HCL [Concomitant]
     Dosage: 1000 MG, 2X/DAY
  4. AMARYL [Concomitant]
     Dosage: 4 MG, 1X/DAY

REACTIONS (1)
  - BLOOD GLUCOSE INCREASED [None]
